FAERS Safety Report 5702207-X (Version None)
Quarter: 2008Q2

REPORT INFORMATION
  Report Type: 
  Country: None (occurrence: None)
  Receive Date: 20080411
  Receipt Date: 20080110
  Transmission Date: 20081010
  Serious: Yes (Death)
  Sender: FDA-Public Use
  Company Number: US-ABBOTT-08P-163-0432990-00

PATIENT
  Age: 24 Year
  Sex: Female

DRUGS (1)
  1. DEPAKOTE [Suspect]
     Indication: CONVULSION PROPHYLAXIS

REACTIONS (1)
  - APLASTIC ANAEMIA [None]
